FAERS Safety Report 13845154 (Version 1)
Quarter: 2017Q3

REPORT INFORMATION
  Report Type: Spontaneous
  Country: US (occurrence: US)
  Receive Date: 20170808
  Receipt Date: 20170808
  Transmission Date: 20171127
  Serious: No
  Sender: FDA-Public Use
  Company Number: US-ABBVIE-16P-163-1768421-00

PATIENT
  Sex: Female

DRUGS (1)
  1. DEPAKOTE ER [Suspect]
     Active Substance: DIVALPROEX SODIUM
     Indication: EPILEPSY
     Dosage: 1 TABLET MORNING ONE TABLET AT NOON , ONE TABLET IN THE AFTERNOON AND 3 TABLETS AT BEDTIME
     Route: 048

REACTIONS (1)
  - Nephropathy [Unknown]
